FAERS Safety Report 5658004-7 (Version None)
Quarter: 2008Q1

REPORT INFORMATION
  Report Type: 
  Country: None (occurrence: None)
  Receive Date: 20080306
  Receipt Date: 20080220
  Transmission Date: 20080703
  Serious: Yes (Hospitalization)
  Sender: FDA-Public Use
  Company Number: 2008BM000033

PATIENT
  Age: 40 Year
  Sex: Female
  Weight: 57.6068 kg

DRUGS (7)
  1. 6R-BH4(SAPROPTERIN DIHYDROCHLORIDE) TABLET, 100MG [Suspect]
     Indication: SICKLE CELL ANAEMIA
     Dosage: 10 MG/KG;QD;PO
     Route: 048
     Dates: start: 20071116, end: 20080212
  2. LEVAQUIN [Concomitant]
  3. ZOSYN [Concomitant]
  4. PREVACID [Concomitant]
  5. HYDROMORPHONE HCL [Concomitant]
  6. HYDROCHLORIDE [Concomitant]
  7. DIPHENHYDRAMINE HYDROCHLORIDE [Concomitant]

REACTIONS (3)
  - ANAEMIA [None]
  - CONDITION AGGRAVATED [None]
  - SICKLE CELL ANAEMIA WITH CRISIS [None]
